FAERS Safety Report 13592009 (Version 2)
Quarter: 2017Q2

REPORT INFORMATION
  Report Type: Spontaneous
  Country: BR (occurrence: BR)
  Receive Date: 20170529
  Receipt Date: 20170616
  Transmission Date: 20170830
  Serious: Yes (Hospitalization, Other)
  Sender: FDA-Public Use
  Company Number: BR-JNJFOC-20170521414

PATIENT
  Age: 25 Year
  Sex: Female
  Weight: 67 kg

DRUGS (5)
  1. ATENOLOL. [Suspect]
     Active Substance: ATENOLOL
     Indication: PRODUCT USED FOR UNKNOWN INDICATION
     Route: 048
     Dates: start: 201601, end: 201608
  2. DEXAMETHASONE. [Concomitant]
     Active Substance: DEXAMETHASONE
     Indication: DYSHIDROTIC ECZEMA
     Dosage: 1 UNK. UNK
     Route: 061
     Dates: start: 2009
  3. XARELTO [Suspect]
     Active Substance: RIVAROXABAN
     Indication: ATRIAL FLUTTER
     Route: 048
     Dates: start: 201601, end: 201603
  4. MERCILON CONTI [Suspect]
     Active Substance: DESOGESTREL\ETHINYL ESTRADIOL
     Indication: CONTRACEPTION
     Route: 048
     Dates: start: 2013, end: 201701
  5. XARELTO [Suspect]
     Active Substance: RIVAROXABAN
     Indication: ATRIAL FLUTTER
     Route: 048
     Dates: start: 201601, end: 201603

REACTIONS (11)
  - Nausea [Recovered/Resolved]
  - Premenstrual syndrome [Unknown]
  - Menstruation normal [Recovered/Resolved]
  - Premenstrual syndrome [Recovered/Resolved]
  - Menorrhagia [Recovered/Resolved]
  - Premenstrual headache [Recovered/Resolved]
  - Somnolence [Recovered/Resolved]
  - Dysmenorrhoea [Recovered/Resolved]
  - Reaction to preservatives [Not Recovered/Not Resolved]
  - Metrorrhagia [Recovered/Resolved]
  - Atrial flutter [Recovered/Resolved]

NARRATIVE: CASE EVENT DATE: 2013
